FAERS Safety Report 10454297 (Version 1)
Quarter: 2014Q3

REPORT INFORMATION
  Report Type: Report from Study
  Country: LB (occurrence: LB)
  Receive Date: 20140915
  Receipt Date: 20140915
  Transmission Date: 20150326
  Serious: Yes (Life-Threatening, Hospitalization)
  Sender: FDA-Public Use
  Company Number: PHHY2014LB118699

PATIENT
  Age: 57 Year
  Sex: Female

DRUGS (1)
  1. ACLASTA [Suspect]
     Active Substance: ZOLEDRONIC ACID
     Dosage: UNK UKN, UNK
     Route: 042
     Dates: start: 201308

REACTIONS (5)
  - Cardiac arrest [Unknown]
  - Coma [Unknown]
  - Brain death [Unknown]
  - Myocardial infarction [Unknown]
  - Brain injury [Unknown]
